FAERS Safety Report 7068327-5 (Version None)
Quarter: 2010Q4

REPORT INFORMATION
  Report Type: 
  Country: None (occurrence: None)
  Receive Date: 20101028
  Receipt Date: 20101027
  Transmission Date: 20110411
  Serious: Yes (Hospitalization)
  Sender: FDA-Public Use
  Company Number: A0877260A

PATIENT
  Sex: Male

DRUGS (8)
  1. MALARONE [Suspect]
     Indication: MALARIA PROPHYLAXIS
     Dosage: 1TAB PER DAY
     Route: 048
     Dates: start: 20071201, end: 20071213
  2. FUROSEMIDE [Concomitant]
  3. NEURONTIN [Concomitant]
  4. LASIX [Concomitant]
  5. COUMADIN [Concomitant]
  6. ALLOPURINOL [Concomitant]
  7. GABAPENTIN [Concomitant]
  8. ATENOLOL [Concomitant]

REACTIONS (42)
  - ANGINA PECTORIS [None]
  - ANXIETY [None]
  - AORTIC DISSECTION [None]
  - ARRHYTHMIA [None]
  - ATRIAL FIBRILLATION [None]
  - BACK PAIN [None]
  - BEDRIDDEN [None]
  - BLISTER [None]
  - BLOOD BLISTER [None]
  - CARDIAC OPERATION [None]
  - CHEST DISCOMFORT [None]
  - CHEST PAIN [None]
  - CLUBBING [None]
  - CONFUSIONAL STATE [None]
  - DECREASED APPETITE [None]
  - DISORIENTATION [None]
  - DYSPNOEA [None]
  - EYE PRURITUS [None]
  - FEAR OF DEATH [None]
  - FEELING HOT [None]
  - FURUNCLE [None]
  - HALLUCINATION [None]
  - HEADACHE [None]
  - HUNGER [None]
  - HYPERHIDROSIS [None]
  - HYPERMETABOLISM [None]
  - HYPOAESTHESIA [None]
  - ILL-DEFINED DISORDER [None]
  - INITIAL INSOMNIA [None]
  - INSOMNIA [None]
  - LACRIMATION INCREASED [None]
  - MUSCLE TIGHTNESS [None]
  - NOCTURIA [None]
  - OEDEMA PERIPHERAL [None]
  - PAIN [None]
  - PHOTOPSIA [None]
  - PYREXIA [None]
  - RASH [None]
  - THINKING ABNORMAL [None]
  - VENTRICULAR TACHYCARDIA [None]
  - VISION BLURRED [None]
  - WEIGHT DECREASED [None]
